FAERS Safety Report 6051701-3 (Version None)
Quarter: 2009Q1

REPORT INFORMATION
  Report Type: 
  Country: None (occurrence: None)
  Receive Date: 20090126
  Receipt Date: 20090114
  Transmission Date: 20090719
  Serious: Yes (Other)
  Sender: FDA-Public Use
  Company Number: US-ROCHE-608552

PATIENT
  Age: 93 Year
  Sex: Female

DRUGS (6)
  1. ROCEPHIN [Suspect]
     Indication: LYME DISEASE
     Route: 065
     Dates: start: 20080901, end: 20081101
  2. DILTIAZAM [Concomitant]
  3. AMIODARONE HCL [Concomitant]
  4. METOPROLOL TARTRATE [Concomitant]
  5. AVAPRO [Concomitant]
  6. PRAVASTATIN [Concomitant]

REACTIONS (3)
  - BLOOD PRESSURE INCREASED [None]
  - CHEST PAIN [None]
  - HEADACHE [None]
